FAERS Safety Report 8542999-8 (Version None)
Quarter: 2012Q3

REPORT INFORMATION
  Report Type: 
  Country: None (occurrence: None)
  Receive Date: 20120727
  Receipt Date: 20120718
  Transmission Date: 20120928
  Serious: Yes (Hospitalization, Disabling)
  Sender: FDA-Public Use
  Company Number: UA-JNJFOC-20090305662

PATIENT
  Sex: Female
  Weight: 63.5 kg

DRUGS (3)
  1. CHLOROQUINE PHOSPHATE [Concomitant]
     Route: 048
     Dates: start: 20080930
  2. GALANTAMINE HYDROBROMIDE [Suspect]
     Indication: DEMENTIA ALZHEIMER'S TYPE
     Route: 048
     Dates: start: 20090220, end: 20090303
  3. MEMANTINE HYDROCHLORIDE [Concomitant]
     Route: 048
     Dates: start: 20080930

REACTIONS (2)
  - GASTRODUODENITIS [None]
  - PANCREATITIS [None]
